FAERS Safety Report 9294008 (Version 1)
Quarter: 2013Q1

REPORT INFORMATION
  Report Type: Spontaneous
  Country: US (occurrence: None)
  Receive Date: 20121226
  Receipt Date: 20121226
  Transmission Date: 20140127
  Serious: Yes (Hospitalization)
  Sender: FDA-Public Use
  Company Number: SP05556

PATIENT
  Age: 15 Year
  Sex: Female
  Weight: 56 kg

DRUGS (2)
  1. APRISO [Suspect]
     Indication: COLITIS ULCERATIVE
     Route: 048
     Dates: start: 20120202, end: 20120216
  2. MESALAMINE (ENEMA) [Concomitant]

REACTIONS (6)
  - Haemoglobin decreased [None]
  - Pyrexia [None]
  - Neck pain [None]
  - Headache [None]
  - Abdominal pain [None]
  - Diarrhoea haemorrhagic [None]
